FAERS Safety Report 13301705 (Version 1)
Quarter: 2017Q1

REPORT INFORMATION
  Report Type: Spontaneous
  Country: US (occurrence: US)
  Receive Date: 20170306
  Receipt Date: 20170306
  Transmission Date: 20170428
  Serious: Yes (Hospitalization)
  Sender: FDA-Public Use
  Company Number: None

PATIENT
  Age: 71 Year
  Sex: Male
  Weight: 77.7 kg

DRUGS (1)
  1. APIXABAN [Suspect]
     Active Substance: APIXABAN
     Indication: DEEP VEIN THROMBOSIS
     Route: 048
     Dates: start: 20170201, end: 20170211

REACTIONS (7)
  - Pyrexia [None]
  - Tachycardia [None]
  - Chest X-ray abnormal [None]
  - Retroperitoneal haemorrhage [None]
  - Pseudomonas infection [None]
  - Aspiration [None]
  - Clostridium difficile infection [None]

NARRATIVE: CASE EVENT DATE: 20170211
